FAERS Safety Report 19397516 (Version 5)
Quarter: 2022Q4

REPORT INFORMATION
  Report Type: Other
  Country: CA (occurrence: CA)
  Receive Date: 20210610
  Receipt Date: 20221110
  Transmission Date: 20230112
  Serious: Yes (Other)
  Sender: FDA-Public Use
  Company Number: CA-APOTEX-2021AP013356

PATIENT
  Age: 63 Year
  Sex: Male
  Weight: 78 kg

DRUGS (10)
  1. PACLITAXEL [Suspect]
     Active Substance: PACLITAXEL
     Indication: Adenocarcinoma pancreas
     Dosage: UNK
     Route: 065
  2. PACLITAXEL [Suspect]
     Active Substance: PACLITAXEL
     Indication: Cutaneous T-cell lymphoma
  3. PACLITAXEL [Suspect]
     Active Substance: PACLITAXEL
     Indication: Pancreatic carcinoma metastatic
  4. PACLITAXEL [Suspect]
     Active Substance: PACLITAXEL
     Indication: Pancreatic carcinoma
  5. GEMCITABINE [Suspect]
     Active Substance: GEMCITABINE
     Indication: Cutaneous T-cell lymphoma
     Dosage: UNK
     Route: 065
  6. GEMCITABINE [Suspect]
     Active Substance: GEMCITABINE
     Indication: Adenocarcinoma pancreas
  7. GEMCITABINE [Suspect]
     Active Substance: GEMCITABINE
     Indication: Pancreatic carcinoma
  8. ABRAXANE [Suspect]
     Active Substance: PACLITAXEL
     Indication: Cutaneous T-cell lymphoma
     Dosage: UNK
     Route: 041
  9. ABRAXANE [Suspect]
     Active Substance: PACLITAXEL
     Indication: Adenocarcinoma pancreas
  10. GEMCITABINE [Concomitant]
     Active Substance: GEMCITABINE
     Indication: Pancreatic carcinoma metastatic
     Dosage: UNK
     Route: 065

REACTIONS (4)
  - Hypoaesthesia [Not Recovered/Not Resolved]
  - Intentional product use issue [Unknown]
  - Off label use [Not Recovered/Not Resolved]
  - Neuropathy peripheral [Not Recovered/Not Resolved]
